FAERS Safety Report 9566366 (Version 2)
Quarter: 2013Q4

REPORT INFORMATION
  Report Type: Report from Study
  Country: US (occurrence: US)
  Receive Date: 20130930
  Receipt Date: 20131127
  Transmission Date: 20140711
  Serious: Yes (Other)
  Sender: FDA-Public Use
  Company Number: US-ABBVIE-13P-163-1150731-00

PATIENT
  Sex: Male

DRUGS (8)
  1. HUMIRA [Suspect]
     Indication: RHEUMATOID ARTHRITIS
     Dates: start: 2006
  2. HUMIRA [Suspect]
     Indication: RHEUMATOID ARTHRITIS
     Dosage: ONCE
  3. PLAQUENIL [Concomitant]
     Indication: RHEUMATOID ARTHRITIS
  4. PREDNISONE [Concomitant]
     Indication: RHEUMATOID ARTHRITIS
  5. NAPROXEN [Concomitant]
     Indication: RHEUMATOID ARTHRITIS
  6. HYDROCODONE [Concomitant]
     Indication: PAIN
     Dosage: 7.5/750MG
  7. LISINOPRIL [Concomitant]
     Indication: HYPERTENSION
  8. METHOTREXATE [Concomitant]
     Indication: RHEUMATOID ARTHRITIS

REACTIONS (14)
  - Hernia [Recovered/Resolved]
  - Umbilical hernia [Unknown]
  - Stitch abscess [Unknown]
  - Fall [Unknown]
  - Joint injury [Unknown]
  - Musculoskeletal pain [Unknown]
  - Injection site pain [Not Recovered/Not Resolved]
  - Hypertension [Unknown]
  - Panic attack [Recovered/Resolved]
  - Dyspnoea [Unknown]
  - Blood iron decreased [Unknown]
  - Vitamin D decreased [Unknown]
  - Fall [Unknown]
  - Joint injury [Unknown]
